FAERS Safety Report 6035815-X (Version None)
Quarter: 2009Q1

REPORT INFORMATION
  Report Type: 
  Country: None (occurrence: None)
  Receive Date: 20090113
  Receipt Date: 20081229
  Transmission Date: 20090719
  Serious: Yes (Other)
  Sender: FDA-Public Use
  Company Number: GB-AVENTIS-200910374GDDC

PATIENT

DRUGS (7)
  1. GLIBENCLAMIDE [Suspect]
  2. SULFAMETHOXAZOLE AND TRIMETHOPRIM [Suspect]
  3. PHENYTOIN [Suspect]
  4. WARFARIN [Suspect]
  5. ENALAPRIL MALEATE [Suspect]
  6. MONOPRIL [Suspect]
  7. NO MENTION OF CONCOMITANT DRUG [Concomitant]

REACTIONS (1)
  - DRUG INTERACTION [None]
